FAERS Safety Report 18328475 (Version 3)
Quarter: 2020Q4

REPORT INFORMATION
  Report Type: Spontaneous
  Country: JP (occurrence: JP)
  Receive Date: 20200930
  Receipt Date: 20201030
  Transmission Date: 20210113
  Serious: Yes (Death, Hospitalization, Other)
  Sender: FDA-Public Use
  Company Number: JP-ROCHE-2687080

PATIENT
  Age: 59 Year
  Sex: Male
  Weight: 59 kg

DRUGS (9)
  1. URSO [Concomitant]
     Active Substance: URSODIOL
     Dosage: DOSAGE IS UNCERTAIN.
     Route: 065
     Dates: end: 20200915
  2. METHYCOBAL [Concomitant]
     Active Substance: METHYLCOBALAMIN
     Dosage: DOSAGE IS UNCERTAIN.
     Route: 065
     Dates: end: 20200915
  3. XELODA [Suspect]
     Active Substance: CAPECITABINE
     Indication: RECTAL CANCER
     Dosage: DOSE INTERVAL: 14 DAYS
     Route: 048
     Dates: start: 20200326, end: 20200915
  4. FEBURIC [Concomitant]
     Active Substance: FEBUXOSTAT
     Dosage: DOSAGE IS UNCERTAIN.
     Route: 065
     Dates: end: 20200915
  5. ELPLAT [Suspect]
     Active Substance: OXALIPLATIN
     Indication: RECTAL CANCER
     Route: 041
     Dates: start: 20200302, end: 20200915
  6. AVASTIN [Suspect]
     Active Substance: BEVACIZUMAB
     Indication: RECTAL CANCER
     Route: 041
     Dates: start: 20200326, end: 20200910
  7. AMLODIPINE [Concomitant]
     Active Substance: AMLODIPINE BESYLATE
     Dosage: DOSAGE IS UNCERTAIN.
     Route: 065
     Dates: end: 20200915
  8. JUSO [Concomitant]
     Active Substance: SODIUM BICARBONATE
     Dosage: DOSAGE IS UNCERTAIN.
     Route: 065
     Dates: end: 20200915
  9. NOVORAPID [Concomitant]
     Active Substance: INSULIN ASPART
     Dosage: DOSAGE IS UNCERTAIN.
     Route: 065
     Dates: end: 20200915

REACTIONS (2)
  - Gastrointestinal perforation [Fatal]
  - Diverticulitis [Unknown]

NARRATIVE: CASE EVENT DATE: 20200915
